FAERS Safety Report 7312990-8 (Version None)
Quarter: 2011Q1

REPORT INFORMATION
  Report Type: 
  Country: None (occurrence: None)
  Receive Date: 20110224
  Receipt Date: 20110211
  Transmission Date: 20110831
  Serious: Yes (Life-Threatening, Disabling, Other)
  Sender: FDA-Public Use
  Company Number: GB-MYLANLABS-2011S1003013

PATIENT
  Age: 51 Year
  Sex: Female
  Weight: 77 kg

DRUGS (3)
  1. FLUOXETINE [Suspect]
     Indication: ANXIETY
     Route: 048
     Dates: start: 20031007, end: 20101220
  2. FLUOXETINE [Suspect]
     Indication: DEPRESSED MOOD
     Route: 048
     Dates: start: 20031007, end: 20101220
  3. FEMOSTON [Concomitant]
     Indication: HORMONE REPLACEMENT THERAPY
     Route: 048
     Dates: start: 20030325, end: 20090126

REACTIONS (2)
  - ALVEOLITIS FIBROSING [None]
  - INTERSTITIAL LUNG DISEASE [None]
